FAERS Safety Report 7343526-3 (Version None)
Quarter: 2011Q1

REPORT INFORMATION
  Report Type: 
  Country: None (occurrence: None)
  Receive Date: 20110310
  Receipt Date: 20100405
  Transmission Date: 20110831
  Serious: No
  Sender: FDA-Public Use
  Company Number: A0853472A

PATIENT
  Age: 43 Year
  Sex: Male

DRUGS (2)
  1. NICOTINE POLACRILEX [Suspect]
     Dates: start: 20100404
  2. NICORETTE [Suspect]

REACTIONS (3)
  - DRUG INEFFECTIVE [None]
  - NICOTINE DEPENDENCE [None]
  - DRUG ADMINISTRATION ERROR [None]
